FAERS Safety Report 18838855 (Version 2)
Quarter: 2021Q2

REPORT INFORMATION
  Report Type: Spontaneous
  Country: US (occurrence: US)
  Receive Date: 20210203
  Receipt Date: 20210420
  Transmission Date: 20210717
  Serious: No
  Sender: FDA-Public Use
  Company Number: US-PFIZER INC-2021085814

PATIENT
  Age: 88 Year
  Sex: Female

DRUGS (2)
  1. IBRANCE [Suspect]
     Active Substance: PALBOCICLIB
     Dosage: 75 MG
     Dates: start: 20201101
  2. IBRANCE [Suspect]
     Active Substance: PALBOCICLIB
     Dosage: 75 MG ON FOR 14 DAYS AND OFF FOR 14 DAYS
     Dates: start: 20201227

REACTIONS (4)
  - Off label use [Unknown]
  - Product use issue [Unknown]
  - Alopecia [Unknown]
  - Cough [Unknown]
